FAERS Safety Report 23414219 (Version 2)
Quarter: 2024Q1

REPORT INFORMATION
  Report Type: Spontaneous
  Country: AU (occurrence: None)
  Receive Date: 20240118
  Receipt Date: 20240129
  Transmission Date: 20240409
  Serious: Yes (Other)
  Sender: FDA-Public Use
  Company Number: AU-PFIZER INC-202400010868

PATIENT
  Age: 32 Year
  Sex: Female
  Weight: 142 kg

DRUGS (4)
  1. METHOTREXATE [Suspect]
     Active Substance: METHOTREXATE
     Indication: Hidradenitis
  2. ADALIMUMAB [Suspect]
     Active Substance: ADALIMUMAB\ISOPROPYL ALCOHOL
     Indication: Hidradenitis
  3. ADALIMUMAB [Suspect]
     Active Substance: ADALIMUMAB\ISOPROPYL ALCOHOL
     Indication: Pyoderma gangrenosum
  4. MOMETASONE [Concomitant]
     Active Substance: MOMETASONE
     Indication: Pyoderma gangrenosum

REACTIONS (3)
  - Disease progression [Unknown]
  - Product use in unapproved indication [Unknown]
  - Drug ineffective [Unknown]
